FAERS Safety Report 9777117 (Version 1)
Quarter: 2013Q4

REPORT INFORMATION
  Report Type: Report from Study
  Country: DE (occurrence: DE)
  Receive Date: 20131221
  Receipt Date: 20131221
  Transmission Date: 20140711
  Serious: Yes (Other)
  Sender: FDA-Public Use
  Company Number: DE-ROCHE-1324146

PATIENT
  Age: 85 Year
  Sex: Female
  Weight: 50.08 kg

DRUGS (4)
  1. RANIBIZUMAB [Suspect]
     Indication: AGE-RELATED MACULAR DEGENERATION
     Route: 050
     Dates: start: 20120215
  2. RANIBIZUMAB [Suspect]
     Indication: RETINAL HAEMORRHAGE
     Route: 050
     Dates: start: 20120912
  3. RANIBIZUMAB [Suspect]
     Route: 050
     Dates: start: 20130516
  4. DORZOLAMIDE [Concomitant]
     Route: 065
     Dates: start: 20100225

REACTIONS (3)
  - Retinal oedema [Unknown]
  - Metamorphopsia [Unknown]
  - Visual acuity reduced [Unknown]
